FAERS Safety Report 23880589 (Version 1)
Quarter: 2024Q2

REPORT INFORMATION
  Report Type: Spontaneous
  Country: US (occurrence: US)
  Receive Date: 20240521
  Receipt Date: 20240521
  Transmission Date: 20240716
  Serious: Yes (Hospitalization)
  Sender: FDA-Public Use
  Company Number: US-PFIZER INC-PV202300059381

PATIENT
  Age: 46 Year
  Sex: Female
  Weight: 58.6 kg

DRUGS (12)
  1. BRAFTOVI [Suspect]
     Active Substance: ENCORAFENIB
     Indication: Metastatic malignant melanoma
     Dosage: 450 MG, 2X/DAY, BID
     Route: 048
  2. BRAFTOVI [Suspect]
     Active Substance: ENCORAFENIB
     Dosage: TAKE 3 CAPSULES, ORAL, DAILY
     Route: 048
  3. BRAFTOVI [Suspect]
     Active Substance: ENCORAFENIB
     Dosage: 450 QD (DAILY)
     Dates: start: 20211203, end: 20211205
  4. BRAFTOVI [Suspect]
     Active Substance: ENCORAFENIB
     Dosage: 300
     Dates: start: 20211213
  5. BRAFTOVI [Suspect]
     Active Substance: ENCORAFENIB
     Dosage: 225
     Dates: start: 20211216
  6. BRAFTOVI [Suspect]
     Active Substance: ENCORAFENIB
     Dosage: 445
     Dates: start: 20211228
  7. BRAFTOVI [Suspect]
     Active Substance: ENCORAFENIB
     Dosage: 300 MG QD (DAILY)
     Dates: start: 20220725, end: 20220725
  8. BRAFTOVI [Suspect]
     Active Substance: ENCORAFENIB
     Dosage: 300
     Dates: start: 20220805
  9. BRAFTOVI [Suspect]
     Active Substance: ENCORAFENIB
     Dosage: 225
     Dates: start: 20220822
  10. MEKTOVI [Suspect]
     Active Substance: BINIMETINIB
     Indication: Metastatic malignant melanoma
     Dosage: 30 MG, 2X/DAY, BID
     Route: 048
  11. MEKTOVI [Suspect]
     Active Substance: BINIMETINIB
     Dosage: 45 BID (TWICE A DAY)
     Dates: start: 20211203, end: 20211205
  12. MEKTOVI [Suspect]
     Active Substance: BINIMETINIB
     Dosage: 30 BID (TWICE A DAY)
     Dates: start: 20211213

REACTIONS (8)
  - Hyponatraemia [Unknown]
  - Anaemia [Unknown]
  - Vision blurred [Recovered/Resolved]
  - Ocular toxicity [Unknown]
  - Headache [Unknown]
  - Cancer pain [Unknown]
  - Off label use [Unknown]
  - Product prescribing error [Unknown]

NARRATIVE: CASE EVENT DATE: 20211201
